FAERS Safety Report 4300634-9 (Version None)
Quarter: 2004Q1

REPORT INFORMATION
  Report Type: 
  Country: None (occurrence: None)
  Receive Date: 20040211
  Receipt Date: 20040126
  Transmission Date: 20041129
  Serious: No
  Sender: FDA-Public Use
  Company Number: CART-10305

PATIENT
  Age: 25 Year
  Sex: Male

DRUGS (1)
  1. CARTICEL [Suspect]
     Indication: ARTHROPATHY
     Dosage: 1 ONCE IS
     Route: 035
     Dates: start: 19980625, end: 19980625

REACTIONS (7)
  - CHONDRITIS [None]
  - CONTUSION [None]
  - DEHYDRATION [None]
  - DRUG INEFFECTIVE [None]
  - JOINT INJURY [None]
  - ROAD TRAFFIC ACCIDENT [None]
  - SYNCOPE [None]
